FAERS Safety Report 19003683 (Version 1)
Quarter: 2021Q1

REPORT INFORMATION
  Report Type: Spontaneous
  Country: US (occurrence: US)
  Receive Date: 20210312
  Receipt Date: 20210312
  Transmission Date: 20210420
  Serious: Yes (Other)
  Sender: FDA-Public Use
  Company Number: US-BRISTOL-MYERS SQUIBB COMPANY-BMS-2021-020876

PATIENT
  Sex: Male

DRUGS (2)
  1. SPRYCEL [Suspect]
     Active Substance: DASATINIB
     Indication: LEUKAEMIA
     Dosage: UNK UNK, QD
     Route: 048
     Dates: start: 202012
  2. SPRYCEL [Suspect]
     Active Substance: DASATINIB
     Dosage: TAKING ONLY HALF A DOSE FOR ABOUT ONE MONTH
     Route: 048

REACTIONS (3)
  - Wrong dose [Unknown]
  - Paraesthesia [Unknown]
  - Thrombosis [Unknown]
